FAERS Safety Report 8875676 (Version 1)
Quarter: 2012Q4

REPORT INFORMATION
  Report Type: 
  Country: US (occurrence: US)
  Receive Date: 20121030
  Receipt Date: 20121030
  Transmission Date: 20130627
  Serious: Yes (Other)
  Sender: FDA-Public Use
  Company Number: US-ROCHE-783629

PATIENT
  Age: 14 Year
  Sex: Male
  Weight: 63.56 kg

DRUGS (10)
  1. ACCUTANE [Suspect]
     Indication: ACNE
     Route: 065
     Dates: start: 199910, end: 200005
  2. ACCUTANE [Suspect]
     Route: 065
     Dates: start: 200011, end: 200012
  3. ACCUTANE [Suspect]
     Route: 065
     Dates: start: 200204, end: 200205
  4. ANAPROX [Concomitant]
  5. PROFEN FORTE [Concomitant]
  6. ENDAL [Concomitant]
  7. AMOXIL [Concomitant]
  8. CELEBREX [Concomitant]
  9. VICODIN [Concomitant]
  10. CEPHALEXIN [Concomitant]

REACTIONS (12)
  - Inflammatory bowel disease [Unknown]
  - Colitis ulcerative [Unknown]
  - Stress [Unknown]
  - Pouchitis [Unknown]
  - Irritable bowel syndrome [Unknown]
  - Arthritis [Unknown]
  - Arthralgia [Unknown]
  - Cough [Unknown]
  - Pyrexia [Unknown]
  - Nasal congestion [Unknown]
  - Headache [Unknown]
  - Oropharyngeal pain [Unknown]
